FAERS Safety Report 6191845-9 (Version None)
Quarter: 2009Q2

REPORT INFORMATION
  Report Type: 
  Country: None (occurrence: None)
  Receive Date: 20090515
  Receipt Date: 20090513
  Transmission Date: 20091009
  Serious: Yes (Other)
  Sender: FDA-Public Use
  Company Number: US-JNJFOC-20090502618

PATIENT
  Age: 47 Year
  Sex: Female

DRUGS (5)
  1. LEVOFLOXACIN [Suspect]
     Indication: PNEUMONIA
     Route: 065
  2. RAMIPRIL [Concomitant]
     Route: 048
  3. SPIRONOLACTONE [Concomitant]
     Route: 048
  4. DIGOXIN [Concomitant]
     Route: 048
  5. WARFARIN SODIUM [Concomitant]
     Route: 048

REACTIONS (1)
  - CATATONIA [None]
